FAERS Safety Report 8024613-3 (Version None)
Quarter: 2012Q1

REPORT INFORMATION
  Report Type: 
  Country: None (occurrence: None)
  Receive Date: 20120103
  Receipt Date: 20111219
  Transmission Date: 20120608
  Serious: Yes (Hospitalization, Other)
  Sender: FDA-Public Use
  Company Number: 1000026580

PATIENT
  Age: 23 Year
  Sex: Female

DRUGS (3)
  1. ESCITALOPRAM OXALATE [Suspect]
     Dosage: 20 MG (20 MG, 1 IN 1 D), ORAL
     Route: 048
  2. OXCARBAZEPINE (OXCARBAZEPINE) (TABLETS) (OXCARBAZEPINE) [Concomitant]
  3. OLANZAPINE (OLANZAPINE) (TABLETS) (OLANZAPINE) [Concomitant]

REACTIONS (22)
  - AMNESIA [None]
  - AGGRESSION [None]
  - DECREASED APPETITE [None]
  - EPILEPSY [None]
  - IRRITABILITY [None]
  - GAIT DISTURBANCE [None]
  - SUICIDE ATTEMPT [None]
  - TARDIVE DYSKINESIA [None]
  - SYNCOPE [None]
  - DECREASED INTEREST [None]
  - DYSARTHRIA [None]
  - ABNORMAL BEHAVIOUR [None]
  - OCULOGYRIC CRISIS [None]
  - SCHIZOPHRENIFORM DISORDER [None]
  - SUSPICIOUSNESS [None]
  - PAIN IN EXTREMITY [None]
  - LOSS OF CONSCIOUSNESS [None]
  - TONGUE BITING [None]
  - ASTHENIA [None]
  - SPUR CELL ANAEMIA [None]
  - TREATMENT NONCOMPLIANCE [None]
  - WITHDRAWAL SYNDROME [None]
